FAERS Safety Report 23571008 (Version 2)
Quarter: 2024Q1

REPORT INFORMATION
  Report Type: Spontaneous
  Country: US (occurrence: US)
  Receive Date: 20240227
  Receipt Date: 20240306
  Transmission Date: 20240410
  Serious: No
  Sender: FDA-Public Use
  Company Number: US-PFIZER INC-202400050825

PATIENT
  Age: 60 Year
  Sex: Female

DRUGS (34)
  1. XELJANZ XR [Suspect]
     Active Substance: TOFACITINIB CITRATE
     Indication: Psoriatic arthropathy
     Dosage: 11 MG, DAILY
     Route: 048
     Dates: start: 20230918
  2. XELJANZ XR [Suspect]
     Active Substance: TOFACITINIB CITRATE
     Indication: Osteoarthritis
  3. BACLOFEN [Concomitant]
     Active Substance: BACLOFEN
  4. ONDANSETRON [Concomitant]
     Active Substance: ONDANSETRON
  5. ZINC [Concomitant]
     Active Substance: PYRITHIONE ZINC\ZINC\ZINC CHLORIDE
  6. EPINEPHRINE [Concomitant]
     Active Substance: EPINEPHRINE
  7. OZEMPIC [Concomitant]
     Active Substance: SEMAGLUTIDE
  8. ROPINIROLE [Concomitant]
     Active Substance: ROPINIROLE
  9. CALCIUM [Concomitant]
     Active Substance: CALCIUM
  10. MAGNESIUM [Concomitant]
     Active Substance: MAGNESIUM
  11. TIZANIDINE [Concomitant]
     Active Substance: TIZANIDINE
  12. FIORICET [Concomitant]
     Active Substance: ACETAMINOPHEN\BUTALBITAL\CAFFEINE
  13. PROAIR DIGIHALER [Concomitant]
     Active Substance: ALBUTEROL SULFATE
  14. NAPROSYN [Concomitant]
     Active Substance: NAPROXEN
  15. LIDO [Concomitant]
  16. LOTION PLUS [Concomitant]
  17. IBUPROFEN [Concomitant]
     Active Substance: IBUPROFEN
  18. OMEPRAZOLE [Concomitant]
     Active Substance: OMEPRAZOLE
  19. ZETIA [Concomitant]
     Active Substance: EZETIMIBE
  20. METFORMIN [Concomitant]
     Active Substance: METFORMIN HYDROCHLORIDE
  21. HERBALS\TURMERIC [Concomitant]
     Active Substance: HERBALS\TURMERIC
  22. ATORVASTATIN [Concomitant]
     Active Substance: ATORVASTATIN
  23. HYDROCHLOROTHIAZIDE [Concomitant]
     Active Substance: HYDROCHLOROTHIAZIDE
  24. GABAPENTIN [Concomitant]
     Active Substance: GABAPENTIN
  25. SENNA S [DOCUSATE SODIUM;SENNA ALEXANDRINA] [Concomitant]
  26. ZYRTEC [Concomitant]
     Active Substance: CETIRIZINE HYDROCHLORIDE
  27. FINASTERIDE [Concomitant]
     Active Substance: FINASTERIDE
  28. FENOFIBRATE [Concomitant]
     Active Substance: FENOFIBRATE
  29. AMLODIPINE [Concomitant]
     Active Substance: AMLODIPINE BESYLATE
  30. BIOTIN [Concomitant]
     Active Substance: BIOTIN
  31. ACETAMINOPHEN\OXYCODONE HYDROCHLORIDE\OXYCODONE TEREPHTHALATE [Concomitant]
     Active Substance: ACETAMINOPHEN\OXYCODONE HYDROCHLORIDE\OXYCODONE TEREPHTHALATE
  32. LISINOPRIL [Concomitant]
     Active Substance: LISINOPRIL
  33. FLUARIX NOS [Concomitant]
     Active Substance: INFLUENZA VIRUS VACCINE
     Dosage: FLUARIX QUAD 2022-23
  34. MODERNA COVID-19 VACCINE [Concomitant]
     Active Substance: ELASOMERAN

REACTIONS (1)
  - Condition aggravated [Unknown]
